FAERS Safety Report 23265010 (Version 2)
Quarter: 2023Q4

REPORT INFORMATION
  Report Type: Spontaneous
  Country: BG (occurrence: BG)
  Receive Date: 20231206
  Receipt Date: 20231208
  Transmission Date: 20240110
  Serious: Yes (Hospitalization, Other)
  Sender: FDA-Public Use
  Company Number: BG-Accord-393347

PATIENT
  Age: 86 Year
  Sex: Male

DRUGS (10)
  1. APIXABAN [Suspect]
     Active Substance: APIXABAN
     Indication: Product used for unknown indication
     Dosage: 2 TIMES HALF A TABLET FROM 2/3 YEARS
  2. ESOMEPRAZOLE [Suspect]
     Active Substance: ESOMEPRAZOLE
     Indication: Product used for unknown indication
     Dosage: ONCE DAILY HALF A TABLET / FROM 2 YEARS
  3. QUETIAPINE [Suspect]
     Active Substance: QUETIAPINE
     Indication: Product used for unknown indication
     Dosage: IN EVENING , 1-2 TABLETS, EVERY 2 DAYS/FROM 5-6 YRS.
  4. OLANZAPINE [Suspect]
     Active Substance: OLANZAPINE
     Indication: Product used for unknown indication
     Dosage: HALF A TABLET DAILY FROM 6 YEARS
  5. PREGABALIN [Suspect]
     Active Substance: PREGABALIN
     Indication: Product used for unknown indication
     Dosage: ONE TABLET DAILY / FROM 6 YEARS
  6. BISOPROLOL FUMARATE [Suspect]
     Active Substance: BISOPROLOL FUMARATE
     Indication: Product used for unknown indication
     Dosage: 2 TIMES HALF A TABLET FROM 10 YEARS
  7. VENLAFAXINE [Suspect]
     Active Substance: VENLAFAXINE HYDROCHLORIDE
     Indication: Product used for unknown indication
     Dosage: 75 MG / SNRIS, 2 TIMES ONE TABLET DAILY / FROM 6 YEARS
  8. DIGOXIN [Suspect]
     Active Substance: DIGOXIN
     Indication: Product used for unknown indication
     Dosage: 1 TIME DAILY HALF A TABLET
  9. BROMAZEPAM [Suspect]
     Active Substance: BROMAZEPAM
     Indication: Product used for unknown indication
     Dosage: IN THE EVENING?ONE OR HALF A TABLET, EVERY 2 DAYS / FROM 30 YEARS
  10. ZOPICLONE [Suspect]
     Active Substance: ZOPICLONE
     Indication: Product used for unknown indication
     Dosage: ONE HALF TO ONE TABLET EVERY TWO?DAYS / FROM 1 YEAR

REACTIONS (1)
  - Basal cell carcinoma [Recovered/Resolved]
